FAERS Safety Report 4610874-7 (Version None)
Quarter: 2005Q2

REPORT INFORMATION
  Report Type: 
  Country: None (occurrence: None)
  Receive Date: 20050228
  Receipt Date: 20041019
  Transmission Date: 20051028
  Serious: Yes (Hospitalization)
  Sender: FDA-Public Use
  Company Number: USA041080527

PATIENT
  Age: 35 Year
  Sex: Male

DRUGS (3)
  1. SYMBYAX [Suspect]
     Indication: MAJOR DEPRESSION
     Dates: start: 20040902, end: 20041001
  2. ATIVAN [Concomitant]
  3. CONTRAST DYE [Concomitant]

REACTIONS (1)
  - ANGIONEUROTIC OEDEMA [None]
